FAERS Safety Report 8824052 (Version 1)
Quarter: 2012Q4

REPORT INFORMATION
  Report Type: 
  Country: CO (occurrence: CO)
  Receive Date: 20121003
  Receipt Date: 20121003
  Transmission Date: 20130627
  Serious: Yes (Hospitalization)
  Sender: FDA-Public Use
  Company Number: CO-UCBSA-067336

PATIENT
  Age: 49 Year
  Sex: Female

DRUGS (4)
  1. CIMZIA [Suspect]
     Indication: RHEUMATOID ARTHRITIS
     Route: 058
     Dates: start: 20120423, end: 20120824
  2. PREDNISOLONE [Concomitant]
     Dosage: DAILY DOSE: 5 MG
     Route: 048
  3. METHOTREXATE [Concomitant]
     Dosage: DAILY DOSE: 15 MG
     Route: 048
  4. CHLOROQUINE [Concomitant]
     Dosage: DAILY DOSE: 150 MG
     Route: 048

REACTIONS (1)
  - Pneumonia [Recovering/Resolving]
